FAERS Safety Report 9459734 (Version 1)
Quarter: 2013Q3

REPORT INFORMATION
  Report Type: Spontaneous
  Country: US (occurrence: US)
  Receive Date: 20130815
  Receipt Date: 20130815
  Transmission Date: 20140515
  Serious: Yes (Other)
  Sender: FDA-Public Use
  Company Number: US-ASTRAZENECA-2013SE61912

PATIENT
  Age: 61 Year
  Sex: Female
  Weight: 119.3 kg

DRUGS (18)
  1. SYMBICORT [Suspect]
     Indication: ASTHMA
     Dosage: 160/4.5 MCG, 2 PUFFS, TWO TIMES A DAY
     Route: 055
     Dates: start: 201303
  2. SYMBICORT [Suspect]
     Indication: CHRONIC OBSTRUCTIVE PULMONARY DISEASE
     Dosage: 160/4.5 MCG, 2 PUFFS, TWO TIMES A DAY
     Route: 055
     Dates: start: 201303
  3. LISINOPRIL [Suspect]
     Indication: BLOOD PRESSURE ABNORMAL
     Route: 048
  4. ADVAIR [Suspect]
     Route: 065
  5. SPIRIVA [Concomitant]
  6. VITAMINS [Concomitant]
  7. LEXAPRO [Concomitant]
     Indication: DEPRESSION
  8. VYVANSE [Concomitant]
     Indication: MEMORY IMPAIRMENT
  9. SINGULAIR [Concomitant]
  10. TOPAMAX [Concomitant]
  11. METFORMIN [Concomitant]
     Indication: DIABETES MELLITUS
     Dosage: BID
  12. CYCLOBENZAPRINE [Concomitant]
  13. HYDROCODONE [Concomitant]
  14. LIPITOR (GEN) [Concomitant]
  15. OXYBUTIN [Concomitant]
  16. FLUTICASONE [Concomitant]
  17. ZYRTEC (GEN) OTC [Concomitant]
  18. IBUPROFEN [Concomitant]

REACTIONS (2)
  - Hyperglycaemic hyperosmolar nonketotic syndrome [Unknown]
  - Candida infection [Not Recovered/Not Resolved]
